FAERS Safety Report 7580634-6 (Version None)
Quarter: 2011Q2

REPORT INFORMATION
  Report Type: 
  Country: None (occurrence: None)
  Receive Date: 20110629
  Receipt Date: 20110622
  Transmission Date: 20111010
  Serious: Yes (Other)
  Sender: FDA-Public Use
  Company Number: US-TEVA-287461USA

PATIENT
  Age: 79 Year
  Sex: Female
  Weight: 71.278 kg

DRUGS (23)
  1. LANSOPRAZOLE [Suspect]
  2. HYDROCODONE [Suspect]
  3. RANITIDINE [Concomitant]
     Dates: start: 20090401
  4. PREDNISONE [Suspect]
  5. IBUPROFEN [Suspect]
  6. ASPIRIN [Concomitant]
  7. IMODIUM [Concomitant]
  8. VENLAFAXINE [Suspect]
  9. CIPROFLOXACIN [Suspect]
  10. METOPROLOL TARTRATE [Concomitant]
  11. MELATONIN [Concomitant]
  12. AZITHROMYCIN [Suspect]
  13. TRAMADOL HCL [Suspect]
  14. VALSARTAN [Concomitant]
  15. CALCIUM MAGNESIUM ZINC [Concomitant]
  16. PREGABALIN [Suspect]
     Indication: NEURALGIA
  17. DYAZIDE [Concomitant]
  18. IPRATROPIUM BROMIDE [Concomitant]
  19. PREGABALIN [Suspect]
     Indication: FIBROMYALGIA
     Dosage: 50 MILLIGRAM;
     Route: 048
     Dates: start: 20110527, end: 20110528
  20. CODEINE [Suspect]
  21. CARISOPRODOL [Suspect]
  22. ERGOCALCIFEROL [Concomitant]
  23. GABAPENTIN [Suspect]
     Indication: NEUROPATHY PERIPHERAL

REACTIONS (8)
  - DIZZINESS [None]
  - SOMNOLENCE [None]
  - CHEST PAIN [None]
  - ACTIVITIES OF DAILY LIVING IMPAIRED [None]
  - ABDOMINAL PAIN UPPER [None]
  - ARTHRALGIA [None]
  - VISUAL IMPAIRMENT [None]
  - HYPOTENSION [None]
